APPROVED DRUG PRODUCT: POTASSIUM CHLORIDE
Active Ingredient: POTASSIUM CHLORIDE
Strength: 20MEQ
Dosage Form/Route: TABLET, EXTENDED RELEASE;ORAL
Application: A076044 | Product #001
Applicant: NESHER PHARMACEUTICALS USA LLC
Approved: Apr 5, 2002 | RLD: No | RS: No | Type: DISCN